FAERS Safety Report 20860072 (Version 1)
Quarter: 2022Q2

REPORT INFORMATION
  Report Type: Spontaneous
  Country: GB (occurrence: GB)
  Receive Date: 20220523
  Receipt Date: 20220523
  Transmission Date: 20220721
  Serious: Yes (Other)
  Sender: FDA-Public Use
  Company Number: GB-BRISTOL-MYERS SQUIBB COMPANY-2022-032804

PATIENT
  Age: 45 Year
  Sex: Female
  Weight: 93.5 kg

DRUGS (6)
  1. CARBOPLATIN [Suspect]
     Active Substance: CARBOPLATIN
     Indication: Anal cancer metastatic
     Dosage: UNKNOWN
     Route: 065
     Dates: start: 202112
  2. CARBOPLATIN [Suspect]
     Active Substance: CARBOPLATIN
     Dosage: UNKNOWN
     Route: 065
     Dates: start: 202109
  3. CARBOPLATIN [Suspect]
     Active Substance: CARBOPLATIN
     Dosage: UNKNOWN
     Route: 065
     Dates: start: 201905, end: 201907
  4. PACLITAXEL [Suspect]
     Active Substance: PACLITAXEL
     Indication: Anal cancer metastatic
     Dosage: UNKNOWN
     Route: 065
     Dates: start: 201905, end: 201907
  5. PACLITAXEL [Suspect]
     Active Substance: PACLITAXEL
     Dosage: UNKNOWN
     Route: 065
     Dates: start: 202109
  6. PACLITAXEL [Suspect]
     Active Substance: PACLITAXEL
     Dosage: UNKNOWN
     Route: 065
     Dates: start: 202112

REACTIONS (4)
  - Metastases to pleura [Unknown]
  - Malignant neoplasm progression [Unknown]
  - Metastases to liver [Unknown]
  - Intentional product use issue [Unknown]

NARRATIVE: CASE EVENT DATE: 20220301
